FAERS Safety Report 8419321-0 (Version None)
Quarter: 2012Q2

REPORT INFORMATION
  Report Type: 
  Country: None (occurrence: None)
  Receive Date: 20120607
  Receipt Date: 20120605
  Transmission Date: 20120825
  Serious: Yes (Death)
  Sender: FDA-Public Use
  Company Number: FR-ROCHE-626116

PATIENT
  Sex: Male
  Weight: 60 kg

DRUGS (9)
  1. CYTARABINE [Suspect]
     Indication: B-CELL LYMPHOMA
     Dosage: ROUTE: IT
     Route: 037
  2. METHYLPREDNISOLONE [Suspect]
     Indication: B-CELL LYMPHOMA
     Dosage: DRUG NAME: SOLU-MEDROL
     Route: 042
  3. DOXORUBICIN HCL [Suspect]
     Indication: B-CELL LYMPHOMA
     Route: 042
  4. CYTARABINE [Suspect]
     Dosage: DRUG NAME: ARACYTINE
     Route: 042
  5. MABTHERA [Suspect]
     Indication: B-CELL LYMPHOMA
     Route: 042
  6. METHOTREXATE [Suspect]
     Indication: B-CELL LYMPHOMA
     Route: 042
  7. VINCRISTINE [Suspect]
     Indication: B-CELL LYMPHOMA
     Route: 042
  8. METHYLPREDNISOLONE [Suspect]
     Dosage: DRUG NAME: MEDROL
     Route: 042
  9. CYCLOPHOSPHAMIDE [Suspect]
     Indication: B-CELL LYMPHOMA
     Route: 042

REACTIONS (1)
  - SUDDEN DEATH [None]
